FAERS Safety Report 19751067 (Version 1)
Quarter: 2021Q3

REPORT INFORMATION
  Report Type: Spontaneous
  Country: US (occurrence: US)
  Receive Date: 20210826
  Receipt Date: 20210826
  Transmission Date: 20211014
  Serious: No
  Sender: FDA-Public Use
  Company Number: US-PFIZER INC-202101036384

PATIENT
  Sex: Female

DRUGS (1)
  1. HUMATIN [Suspect]
     Active Substance: PAROMOMYCIN SULFATE
     Indication: INFECTION PARASITIC
     Dosage: UNK

REACTIONS (2)
  - Diarrhoea [Unknown]
  - Expired product administered [Unknown]
